FAERS Safety Report 25210352 (Version 1)
Quarter: 2025Q2

REPORT INFORMATION
  Report Type: Spontaneous
  Country: NL (occurrence: NL)
  Receive Date: 20250417
  Receipt Date: 20250417
  Transmission Date: 20250717
  Serious: Yes (Other)
  Sender: MYLAN
  Company Number: None

PATIENT
  Age: 23 Year
  Sex: Male
  Weight: 75 kg

DRUGS (12)
  1. TRAMADOL [Suspect]
     Active Substance: TRAMADOL
     Indication: Pain
     Dosage: 100 MILLIGRAM, Q6H (4 X PER DAY 2 PIECES)
     Dates: start: 20250309
  2. TRAMADOL [Suspect]
     Active Substance: TRAMADOL
     Dosage: 100 MILLIGRAM, Q6H (4 X PER DAY 2 PIECES)
     Route: 048
     Dates: start: 20250309
  3. TRAMADOL [Suspect]
     Active Substance: TRAMADOL
     Dosage: 100 MILLIGRAM, Q6H (4 X PER DAY 2 PIECES)
     Route: 048
     Dates: start: 20250309
  4. TRAMADOL [Suspect]
     Active Substance: TRAMADOL
     Dosage: 100 MILLIGRAM, Q6H (4 X PER DAY 2 PIECES)
     Dates: start: 20250309
  5. ACETAMINOPHEN [Suspect]
     Active Substance: ACETAMINOPHEN
     Indication: Pain
     Dosage: 1000 MILLIGRAM, Q6H (4 X PER DAY 2 PIECES)
     Dates: start: 20250307
  6. ACETAMINOPHEN [Suspect]
     Active Substance: ACETAMINOPHEN
     Dosage: 1000 MILLIGRAM, Q6H (4 X PER DAY 2 PIECES)
     Route: 048
     Dates: start: 20250307
  7. ACETAMINOPHEN [Suspect]
     Active Substance: ACETAMINOPHEN
     Dosage: 1000 MILLIGRAM, Q6H (4 X PER DAY 2 PIECES)
     Route: 048
     Dates: start: 20250307
  8. ACETAMINOPHEN [Suspect]
     Active Substance: ACETAMINOPHEN
     Dosage: 1000 MILLIGRAM, Q6H (4 X PER DAY 2 PIECES)
     Dates: start: 20250307
  9. FINASTERIDE [Concomitant]
     Active Substance: FINASTERIDE
  10. FINASTERIDE [Concomitant]
     Active Substance: FINASTERIDE
     Route: 048
  11. FINASTERIDE [Concomitant]
     Active Substance: FINASTERIDE
     Route: 048
  12. FINASTERIDE [Concomitant]
     Active Substance: FINASTERIDE

REACTIONS (3)
  - Erectile dysfunction [Not Recovered/Not Resolved]
  - Hypospermia [Not Recovered/Not Resolved]
  - Libido decreased [Not Recovered/Not Resolved]
